FAERS Safety Report 4684270-0 (Version None)
Quarter: 2005Q2

REPORT INFORMATION
  Report Type: 
  Country: None (occurrence: None)
  Receive Date: 20050531
  Receipt Date: 20050429
  Transmission Date: 20051028
  Serious: Yes (Hospitalization, Other)
  Sender: FDA-Public Use
  Company Number: US_0411107659

PATIENT
  Sex: Male
  Weight: 145 kg

DRUGS (3)
  1. ZYPREXA [Suspect]
     Dosage: 20 MG/1 DAY
     Dates: start: 20010101
  2. SYMBYAX [Suspect]
     Dates: start: 20010101
  3. AMARYL [Concomitant]

REACTIONS (7)
  - BLOOD GLUCOSE INCREASED [None]
  - BLOOD TRIGLYCERIDES INCREASED [None]
  - DIABETES MELLITUS [None]
  - EMOTIONAL DISTRESS [None]
  - FURUNCLE [None]
  - HERPES SIMPLEX [None]
  - HYPOGLYCAEMIA [None]
